FAERS Safety Report 8798594 (Version 1)
Quarter: 2012Q4

REPORT INFORMATION
  Report Type: Report from Study
  Country: JP (occurrence: JP)
  Receive Date: 20120920
  Receipt Date: 20120920
  Transmission Date: 20130627
  Serious: Yes (Other)
  Sender: FDA-Public Use
  Company Number: JP-VERTEX PHARMACEUTICAL INC.-AE-2012-007657

PATIENT
  Age: 58 Year
  Sex: Male

DRUGS (11)
  1. VX-950 [Suspect]
     Indication: HEPATITIS C
     Dosage: 1500 mg, qd
     Route: 048
     Dates: start: 20120317, end: 20120604
  2. RIBAVIRIN [Suspect]
     Indication: HEPATITIS C
     Dosage: 800 mg, qd
     Route: 048
     Dates: start: 20120317, end: 20120330
  3. RIBAVIRIN [Suspect]
     Dosage: 600 mg, qd
     Route: 048
     Dates: start: 20120331
  4. RIBAVIRIN [Suspect]
     Dosage: 800 mg, qd
     Route: 048
     Dates: end: 20120820
  5. RIBAVIRIN [Suspect]
     Dosage: UNK
  6. PEGINTERFERON ALFA-2B [Suspect]
     Indication: HEPATITIS C
     Dosage: 1.5 UNK, UNK
     Route: 058
     Dates: start: 20120317, end: 20120820
  7. LIVALO [Concomitant]
     Dosage: 2 mg, qd
     Route: 048
  8. EPADEL S [Concomitant]
     Dosage: 1800 mg, qd
     Route: 048
  9. CLARITIN REDITABS [Concomitant]
     Dosage: 10 mg, qd
     Route: 048
  10. FEROTYM [Concomitant]
     Dosage: 100 mg, qd
     Route: 048
  11. HALTHROW OD [Concomitant]
     Dosage: 0.1 mg, qd
     Route: 048

REACTIONS (5)
  - Rash [Not Recovered/Not Resolved]
  - Anaemia [Not Recovered/Not Resolved]
  - Anaemia [Not Recovered/Not Resolved]
  - Anaemia [Not Recovered/Not Resolved]
  - Platelet count decreased [Not Recovered/Not Resolved]
